FAERS Safety Report 7686398-X (Version None)
Quarter: 2011Q3

REPORT INFORMATION
  Report Type: 
  Country: None (occurrence: None)
  Receive Date: 20110816
  Receipt Date: 20110803
  Transmission Date: 20111222
  Serious: Yes (Congenital Anomaly)
  Sender: FDA-Public Use
  Company Number: DK-ELI_LILLY_AND_COMPANY-DK201104006411

PATIENT
  Weight: 3.6 kg

DRUGS (4)
  1. CYMBALTA [Suspect]
     Dosage: 30 MG, QD
     Route: 064
  2. CYMBALTA [Suspect]
     Indication: DEPRESSION
     Dosage: 120 MG, QD
     Route: 064
  3. CYMBALTA [Suspect]
     Dosage: 30 MG, QD
     Route: 064
  4. CYMBALTA [Suspect]
     Dosage: 120 MG, QD
     Route: 064

REACTIONS (4)
  - MATERNAL EXPOSURE DURING PREGNANCY [None]
  - RETINAL COLOBOMA [None]
  - IRIS COLOBOMA [None]
  - CONGENITAL ANOMALY [None]
